FAERS Safety Report 6535586-4 (Version None)
Quarter: 2009Q4

REPORT INFORMATION
  Report Type: 
  Country: None (occurrence: None)
  Receive Date: 20091228
  Receipt Date: 20090108
  Transmission Date: 20100525
  Serious: Yes (Hospitalization)
  Sender: FDA-Public Use
  Company Number: US-002346

PATIENT
  Age: 37 Year
  Sex: Female
  Weight: 105 kg

DRUGS (5)
  1. MULTIHANCE [Suspect]
     Indication: NUCLEAR MAGNETIC RESONANCE IMAGING BRAIN
     Dosage: 20 ML QD, INTRAVENOUS
     Route: 042
     Dates: start: 20090106, end: 20090106
  2. MULTIHANCE [Suspect]
     Indication: TRANSIENT ISCHAEMIC ATTACK
     Dosage: 20 ML QD, INTRAVENOUS
     Route: 042
     Dates: start: 20090106, end: 20090106
  3. COREG [Concomitant]
  4. VALSARTAN [Concomitant]
  5. AMLODIPINE BESYLATE [Concomitant]

REACTIONS (1)
  - ANAPHYLACTIC SHOCK [None]
